FAERS Safety Report 5808094-3 (Version None)
Quarter: 2008Q3

REPORT INFORMATION
  Report Type: 
  Country: None (occurrence: None)
  Receive Date: 20080711
  Receipt Date: 20080702
  Transmission Date: 20090109
  Serious: Yes (Hospitalization, Other)
  Sender: FDA-Public Use
  Company Number: KR-PFIZER INC-2008055367

PATIENT
  Age: 29 Year
  Sex: Female

DRUGS (6)
  1. CELECOXIB [Suspect]
     Indication: ARTHRITIS
     Dates: start: 20040301, end: 20040101
  2. ISONIAZID [Suspect]
     Indication: PULMONARY TUBERCULOSIS
     Dates: start: 20040325, end: 20040101
  3. ETHAMBUTOL HYDROCHLORIDE [Suspect]
     Indication: PULMONARY TUBERCULOSIS
     Dates: start: 20040325, end: 20040101
  4. RIFAMPICIN [Suspect]
     Indication: PULMONARY TUBERCULOSIS
     Dates: start: 20040325, end: 20040101
  5. PYRAZINAMIDE [Suspect]
     Indication: PULMONARY TUBERCULOSIS
     Dates: start: 20040325, end: 20040101
  6. AZATHIOPRINE [Suspect]
     Indication: ALANINE AMINOTRANSFERASE ABNORMAL
     Dates: start: 20040827, end: 20040912

REACTIONS (2)
  - CHOLESTASIS [None]
  - DRUG RASH WITH EOSINOPHILIA AND SYSTEMIC SYMPTOMS [None]
